FAERS Safety Report 5530516-6 (Version None)
Quarter: 2007Q4

REPORT INFORMATION
  Report Type: 
  Country: None (occurrence: None)
  Receive Date: 20071130
  Receipt Date: 20071126
  Transmission Date: 20080405
  Serious: Yes (Death, Other)
  Sender: FDA-Public Use
  Company Number: CH-AVENTIS-200720856GDDC

PATIENT
  Age: 31 Year
  Sex: Female
  Weight: 42.2 kg

DRUGS (3)
  1. EFLORNITHINE [Suspect]
     Indication: AFRICAN TRYPANOSOMIASIS
     Route: 042
     Dates: start: 20071115, end: 20071117
  2. NIFURTIMOX [Suspect]
     Indication: AFRICAN TRYPANOSOMIASIS
     Route: 048
     Dates: start: 20071115, end: 20071117
  3. PARACETAMOL [Concomitant]
     Indication: HEADACHE
     Route: 048
     Dates: start: 20071115, end: 20071115

REACTIONS (2)
  - HEADACHE [None]
  - VOMITING [None]
